FAERS Safety Report 6029469-6 (Version None)
Quarter: 2008Q4

REPORT INFORMATION
  Report Type: 
  Country: None (occurrence: None)
  Receive Date: 20081222
  Receipt Date: 20080823
  Transmission Date: 20090506
  Serious: No
  Sender: FDA-Public Use
  Company Number: ALL1-2008-02394

PATIENT
  Age: 8 Year
  Sex: Male

DRUGS (1)
  1. VYVANSE [Suspect]
     Indication: ATTENTION DEFICIT/HYPERACTIVITY DISORDER
     Dosage: 20 MG, 1X/DAY:QD, ORAL
     Route: 048
     Dates: start: 20080813

REACTIONS (1)
  - STEREOTYPY [None]
